FAERS Safety Report 5701621-6 (Version None)
Quarter: 2008Q2

REPORT INFORMATION
  Report Type: 
  Country: None (occurrence: None)
  Receive Date: 20080410
  Receipt Date: 20080410
  Transmission Date: 20081010
  Serious: Yes (Disabling)
  Sender: FDA-Public Use
  Company Number: None

PATIENT
  Age: 68 Year
  Sex: Female
  Weight: 65.7716 kg

DRUGS (1)
  1. ADVAIR DISKUS 250/50 [Suspect]
     Indication: ASTHMA
     Dosage: 2 PUFFS PER DAY
     Dates: start: 20060101, end: 20070601

REACTIONS (3)
  - PHARMACEUTICAL PRODUCT COMPLAINT [None]
  - TOOTH DISORDER [None]
  - TOOTH LOSS [None]
